FAERS Safety Report 4476266-9 (Version None)
Quarter: 2004Q3

REPORT INFORMATION
  Report Type: 
  Country: None (occurrence: None)
  Receive Date: 20040923
  Receipt Date: 20040803
  Transmission Date: 20050211
  Serious: No
  Sender: FDA-Public Use
  Company Number: USA040773994

PATIENT
  Age: 66 Year
  Sex: Female
  Weight: 45 kg

DRUGS (2)
  1. FORTEO [Suspect]
     Indication: OSTEOPOROSIS
     Dosage: 20 UG 1 DAY
     Dates: start: 20031201
  2. LIPITOR [Concomitant]

REACTIONS (4)
  - ALOPECIA [None]
  - FACIAL PAIN [None]
  - FALL [None]
  - INJECTION SITE PAIN [None]
